FAERS Safety Report 4917876-1 (Version None)
Quarter: 2006Q1

REPORT INFORMATION
  Report Type: 
  Country: None (occurrence: None)
  Receive Date: 20060215
  Receipt Date: 20060202
  Transmission Date: 20060701
  Serious: Yes (Other)
  Sender: FDA-Public Use
  Company Number: 2005170023

PATIENT
  Age: 56 Year
  Sex: Female
  Weight: 67 kg

DRUGS (2)
  1. AROMASIN [Suspect]
     Indication: ILL-DEFINED DISORDER
     Dosage: 1 TABLET 1 IN 1 D), ORAL
     Route: 048
     Dates: start: 20050801, end: 20060120
  2. LODOZ (BISOPROLOL FUMARATE, HYDROCHLOROTHIAZIDE) [Concomitant]

REACTIONS (9)
  - ABDOMINAL PAIN [None]
  - ARTHRALGIA [None]
  - CARPAL TUNNEL SYNDROME [None]
  - ERYTHEMA [None]
  - HAEMANGIOMA [None]
  - HEPATIC STEATOSIS [None]
  - HOT FLUSH [None]
  - PARAESTHESIA [None]
  - TRANSAMINASES INCREASED [None]
